FAERS Safety Report 8943092 (Version 1)
Quarter: 2012Q4

REPORT INFORMATION
  Report Type: Report from Study
  Country: DE (occurrence: DE)
  Receive Date: 20121204
  Receipt Date: 20121204
  Transmission Date: 20130627
  Serious: Yes (Hospitalization)
  Sender: FDA-Public Use
  Company Number: DE-SANOFI-AVENTIS-2012SA086533

PATIENT
  Age: 67 Year
  Sex: Female
  Weight: 56 kg

DRUGS (8)
  1. DOCETAXEL [Suspect]
     Indication: HER-2 POSITIVE BREAST CANCER
     Dosage: total dose: 117 mg
form: vial
     Route: 042
     Dates: start: 20100322
  2. BEVACIZUMAB [Suspect]
     Indication: HER-2 POSITIVE BREAST CANCER
     Dosage: form: vial
total dose: 930 mg
     Route: 042
     Dates: start: 20100322
  3. TRASTUZUMAB [Suspect]
     Indication: HER-2 POSITIVE BREAST CANCER
     Dosage: form vial
     Route: 042
     Dates: start: 20100322
  4. TRASTUZUMAB [Suspect]
     Indication: HER-2 POSITIVE BREAST CANCER
     Dosage: form vial
total dose 496 mg
     Route: 042
  5. CARBOPLATIN [Suspect]
     Indication: HER-2 POSITIVE BREAST CANCER
     Dosage: form: vial
dose level 6 AUC
     Route: 042
     Dates: start: 20100322
  6. ENALAPRIL [Concomitant]
     Dates: start: 20100525
  7. METOHEXAL [Concomitant]
     Dosage: dose;142.5
     Dates: start: 20100525
  8. L-THYROXIN [Concomitant]
     Dates: start: 20100525

REACTIONS (2)
  - Vertigo [Recovered/Resolved]
  - Influenza like illness [Recovered/Resolved]
